FAERS Safety Report 6996666-2 (Version None)
Quarter: 2010Q3

REPORT INFORMATION
  Report Type: 
  Country: None (occurrence: None)
  Receive Date: 20100918
  Receipt Date: 20090422
  Transmission Date: 20110219
  Serious: No
  Sender: FDA-Public Use
  Company Number: US-WYE-H09099609

PATIENT
  Sex: Female
  Weight: 61.29 kg

DRUGS (4)
  1. EFFEXOR XR [Suspect]
     Route: 048
     Dates: start: 20050101, end: 20090301
  2. EFFEXOR XR [Suspect]
     Dosage: TAPERED DOSE (DOSE REDUCTION UNKNOWN)
     Route: 048
     Dates: start: 20090301, end: 20090101
  3. EFFEXOR XR [Suspect]
     Route: 048
     Dates: start: 20090101, end: 20090101
  4. EFFEXOR XR [Suspect]
     Route: 048
     Dates: start: 20090101, end: 20090418

REACTIONS (5)
  - DEPRESSED MOOD [None]
  - DRUG WITHDRAWAL SYNDROME [None]
  - EMOTIONAL DISORDER [None]
  - PARAESTHESIA [None]
  - VOMITING [None]
